FAERS Safety Report 8438443-1 (Version None)
Quarter: 2012Q2

REPORT INFORMATION
  Report Type: 
  Country: None (occurrence: None)
  Receive Date: 20120614
  Receipt Date: 20120601
  Transmission Date: 20120825
  Serious: Yes (Other)
  Sender: FDA-Public Use
  Company Number: CHPA2012US011468

PATIENT
  Age: 65 Year
  Sex: Female

DRUGS (1)
  1. MYOFLEX [Suspect]
     Indication: ARTHRITIS
     Dosage: NICKLE SIZE, FEW TIMES PER DAY
     Route: 061

REACTIONS (4)
  - BREAST CANCER FEMALE [None]
  - INCORRECT DRUG ADMINISTRATION DURATION [None]
  - FUNGAL INFECTION [None]
  - BREAST CANCER [None]
